FAERS Safety Report 16917251 (Version 1)
Quarter: 2019Q4

REPORT INFORMATION
  Report Type: Spontaneous
  Country: FR (occurrence: FR)
  Receive Date: 20191015
  Receipt Date: 20191015
  Transmission Date: 20200122
  Serious: Yes (Other)
  Sender: FDA-Public Use
  Company Number: FR-TEVA-2019-FR-1120624

PATIENT
  Age: 55 Year
  Sex: Male
  Weight: 61 kg

DRUGS (2)
  1. CARBOPLATINE [Concomitant]
     Active Substance: CARBOPLATIN
     Indication: BRONCHIAL CARCINOMA
  2. PACLITAXEL TEVA 6 MG/ML, SOLUTION A DILUER POUR PERFUSION [Suspect]
     Active Substance: PACLITAXEL
     Indication: BRONCHIAL CARCINOMA
     Dosage: 1 CYCLE, 144MG/ 38 DAYS
     Route: 042
     Dates: start: 20190612, end: 20190720

REACTIONS (1)
  - Dermatitis bullous [Not Recovered/Not Resolved]

NARRATIVE: CASE EVENT DATE: 20190724
